FAERS Safety Report 6581143-3 (Version None)
Quarter: 2010Q1

REPORT INFORMATION
  Report Type: 
  Country: None (occurrence: None)
  Receive Date: 20100215
  Receipt Date: 20100205
  Transmission Date: 20100710
  Serious: Yes (Hospitalization)
  Sender: FDA-Public Use
  Company Number: IT-ASTRAZENECA-2010SE05478

PATIENT
  Age: 16347 Day
  Sex: Male

DRUGS (2)
  1. CRESTOR [Suspect]
     Indication: HYPERLIPIDAEMIA
     Route: 048
     Dates: start: 20090618, end: 20090618
  2. ESKIM [Suspect]
     Indication: HYPERLIPIDAEMIA
     Route: 048
     Dates: start: 20090618, end: 20090618

REACTIONS (2)
  - PRURITUS ALLERGIC [None]
  - URTICARIA [None]
